FAERS Safety Report 4632755-5 (Version None)
Quarter: 2005Q2

REPORT INFORMATION
  Report Type: 
  Country: None (occurrence: None)
  Receive Date: 20050408
  Receipt Date: 20050408
  Transmission Date: 20051028
  Serious: Yes (Life-Threatening)
  Sender: FDA-Public Use
  Company Number: None

PATIENT
  Age: 72 Year
  Sex: Female
  Weight: 82.5547 kg

DRUGS (1)
  1. CEFEPIME  500 MG  ELAN [Suspect]
     Indication: SEPSIS
     Dosage: 500 MG Q12 INTRAVENOUS
     Route: 042
     Dates: start: 20050404, end: 20050406

REACTIONS (2)
  - ANGIONEUROTIC OEDEMA [None]
  - STRIDOR [None]
